FAERS Safety Report 16125059 (Version 3)
Quarter: 2019Q3

REPORT INFORMATION
  Report Type: Spontaneous
  Country: US (occurrence: US)
  Receive Date: 20190327
  Receipt Date: 20190723
  Transmission Date: 20191004
  Serious: Yes (Hospitalization, Other)
  Sender: FDA-Public Use
  Company Number: US-PFIZER INC-2019119880

PATIENT
  Age: 59 Year
  Sex: Female
  Weight: 86.18 kg

DRUGS (4)
  1. METOPROLOL. [Concomitant]
     Active Substance: METOPROLOL
     Dosage: UNK
     Dates: start: 2010
  2. APRISO [Concomitant]
     Active Substance: MESALAMINE
     Dosage: UNK
     Dates: start: 2008
  3. XELJANZ [Suspect]
     Active Substance: TOFACITINIB CITRATE
     Indication: COLITIS ULCERATIVE
     Dosage: 20 MG, 1X/DAY
     Route: 048
     Dates: start: 20190314, end: 20190317
  4. ASPIRIN. [Concomitant]
     Active Substance: ASPIRIN
     Dosage: UNK
     Dates: start: 2010

REACTIONS (10)
  - Throat tightness [Recovered/Resolved]
  - Drug hypersensitivity [Recovered/Resolved]
  - Ear pain [Recovered/Resolved]
  - Heart rate increased [Recovered/Resolved]
  - Dysphagia [Recovered/Resolved]
  - Pain in jaw [Recovered/Resolved]
  - Influenza like illness [Recovered/Resolved]
  - Pharyngeal swelling [Recovered/Resolved]
  - Ear swelling [Recovered/Resolved]
  - Swelling face [Recovered/Resolved]

NARRATIVE: CASE EVENT DATE: 20190314
